FAERS Safety Report 9665536 (Version 1)
Quarter: 2013Q4

REPORT INFORMATION
  Report Type: Spontaneous
  Country: US (occurrence: None)
  Receive Date: 20131101
  Receipt Date: 20131101
  Transmission Date: 20140711
  Serious: No
  Sender: FDA-Public Use
  Company Number: None

PATIENT
  Age: 21 Year
  Sex: Female
  Weight: 56.7 kg

DRUGS (1)
  1. MIRENA [Suspect]

REACTIONS (11)
  - Heart rate increased [None]
  - Breast mass [None]
  - Bacterial vaginosis [None]
  - Abdominal pain [None]
  - Musculoskeletal pain [None]
  - Back pain [None]
  - Abdominal distension [None]
  - Mood swings [None]
  - Breast pain [None]
  - Nipple pain [None]
  - Vaginal haemorrhage [None]
